FAERS Safety Report 24943519 (Version 9)
Quarter: 2025Q3

REPORT INFORMATION
  Report Type: Report from Study
  Country: US (occurrence: US)
  Receive Date: 20250207
  Receipt Date: 20250929
  Transmission Date: 20251020
  Serious: Yes (Other)
  Sender: SUNOVION
  Company Number: US-SUMITOMO PHARMA SWITZERLAND GMBH-2025SPA000889

PATIENT
  Age: 65 Year
  Sex: Male

DRUGS (24)
  1. ORGOVYX [Suspect]
     Active Substance: RELUGOLIX
     Indication: Prostate cancer
     Dosage: 360 MG, SINGLE
     Route: 048
     Dates: start: 20250103, end: 20250103
  2. ORGOVYX [Suspect]
     Active Substance: RELUGOLIX
     Dosage: 120 MG, QD
     Route: 048
     Dates: start: 20250104
  3. MELOXICAM [Concomitant]
     Active Substance: MELOXICAM
     Route: 048
  4. VITAMIN C [Concomitant]
     Active Substance: ASCORBIC ACID
     Route: 048
  5. VITAMIN E [Concomitant]
     Active Substance: .ALPHA.-TOCOPHEROL
     Route: 048
  6. ZINC [Concomitant]
     Active Substance: ZINC
     Route: 048
  7. ALPHA LIPOIC ACID [Concomitant]
     Active Substance: .ALPHA.-LIPOIC ACID
     Route: 048
  8. DIETARY SUPPLEMENT\HERBALS\MILK THISTLE [Concomitant]
     Active Substance: MILK THISTLE
     Route: 048
  9. CRANBERRY [Concomitant]
     Active Substance: CRANBERRY
     Route: 048
  10. GINGER [Concomitant]
     Active Substance: GINGER
     Route: 048
  11. OMEGA-3 FATTY ACIDS [Concomitant]
     Active Substance: OMEGA-3 FATTY ACIDS
     Route: 048
  12. VITAMIN D [Concomitant]
     Active Substance: VITAMIN D NOS
     Route: 048
  13. CHOLESTYRAMINE [Concomitant]
     Active Substance: CHOLESTYRAMINE
     Route: 048
  14. PSYLLIUM HUSK [Concomitant]
     Active Substance: PSYLLIUM HUSK
  15. MAGNESIUM [Concomitant]
     Active Substance: MAGNESIUM
     Route: 048
  16. DIETARY SUPPLEMENT\HERBALS [Concomitant]
     Active Substance: DIETARY SUPPLEMENT\HERBALS
     Route: 048
  17. SELENIUM [Concomitant]
     Active Substance: SELENIUM
     Route: 048
  18. GLUTATHIONE [Concomitant]
     Active Substance: GLUTATHIONE
  19. BROCCOLI [Concomitant]
     Active Substance: BROCCOLI
     Route: 048
  20. TAMSULOSIN [Concomitant]
     Active Substance: TAMSULOSIN
     Route: 048
  21. Black cohosh extract [Concomitant]
     Route: 048
  22. HERBALS\TURMERIC [Concomitant]
     Active Substance: HERBALS\TURMERIC
     Route: 048
  23. Pollens [Concomitant]
  24. MUPIROCIN [Concomitant]
     Active Substance: MUPIROCIN
     Route: 061

REACTIONS (25)
  - Suicidal ideation [Recovered/Resolved]
  - Micturition urgency [Unknown]
  - Memory impairment [Unknown]
  - Brain fog [Unknown]
  - Palpitations [Unknown]
  - Decreased appetite [Unknown]
  - Muscle spasms [Unknown]
  - Chills [Unknown]
  - Nerve compression [Unknown]
  - Amnesia [Unknown]
  - Pain [Unknown]
  - Intervertebral disc protrusion [Unknown]
  - Sleep disorder [Unknown]
  - Decreased activity [Unknown]
  - Motor dysfunction [Unknown]
  - Abdominal discomfort [Unknown]
  - Dizziness [Unknown]
  - Nausea [Unknown]
  - Pain in extremity [Unknown]
  - Hot flush [Unknown]
  - Hyperhidrosis [Unknown]
  - Arthralgia [Unknown]
  - Fatigue [Unknown]
  - Asthenia [Unknown]
  - Product dose omission issue [Recovered/Resolved]

NARRATIVE: CASE EVENT DATE: 20250101
